FAERS Safety Report 23151027 (Version 1)
Quarter: 2023Q4

REPORT INFORMATION
  Report Type: Report from Study
  Country: CO (occurrence: CO)
  Receive Date: 20231106
  Receipt Date: 20231106
  Transmission Date: 20240109
  Serious: Yes (Hospitalization)
  Sender: FDA-Public Use
  Company Number: CO-ABBVIE-5449067

PATIENT
  Age: 12 Year
  Sex: Female
  Weight: 52 kg

DRUGS (3)
  1. HUMIRA [Suspect]
     Active Substance: ADALIMUMAB
     Indication: Juvenile idiopathic arthritis
     Dosage: FORM STRENGTH: 40 MILLIGRAM
     Route: 058
     Dates: start: 20201002, end: 202307
  2. HUMIRA [Suspect]
     Active Substance: ADALIMUMAB
     Route: 058
  3. METHOTREXATE [Concomitant]
     Active Substance: METHOTREXATE
     Indication: Product used for unknown indication
     Dates: start: 2020

REACTIONS (1)
  - Uveitis [Not Recovered/Not Resolved]

NARRATIVE: CASE EVENT DATE: 20231001
